FAERS Safety Report 24172785 (Version 1)
Quarter: 2024Q3

REPORT INFORMATION
  Report Type: Spontaneous
  Country: ZA (occurrence: ZA)
  Receive Date: 20240805
  Receipt Date: 20240805
  Transmission Date: 20241017
  Serious: Yes (Hospitalization)
  Sender: MACLEODS
  Company Number: ZA-MACLEODS PHARMA-MAC2024048586

PATIENT

DRUGS (16)
  1. HYDROCHLOROTHIAZIDE\VALSARTAN [Suspect]
     Active Substance: HYDROCHLOROTHIAZIDE\VALSARTAN
     Indication: Hypertension
     Dosage: HALF A  TABLET  DAILY
     Route: 048
  2. HERBALS [Suspect]
     Active Substance: HERBALS
     Indication: Product used for unknown indication
     Dosage: AS PER PACKAGE INSERT
     Route: 048
  3. SIMVASTATIN [Suspect]
     Active Substance: SIMVASTATIN
     Indication: Blood cholesterol increased
     Dosage: 20 MG ONE TABLET  DAILY
     Route: 048
  4. HYDROCORTISONE ACETATE [Suspect]
     Active Substance: HYDROCORTISONE ACETATE
     Indication: Product used for unknown indication
     Dosage: AS PER  PACKAGE  INSERT
     Route: 061
  5. ACETAMINOPHEN\CODEINE\IBUPROFEN [Suspect]
     Active Substance: ACETAMINOPHEN\CODEINE\IBUPROFEN
     Indication: Product used for unknown indication
     Dosage: TWO  CAPSULES  THREE  TIMES A  DAY
     Route: 048
  6. FUSIDATE SODIUM [Suspect]
     Active Substance: FUSIDATE SODIUM
     Indication: Product used for unknown indication
     Dosage: 20 MG  APPLY TO  THE  AFFECTED  AREA/S  TWICE A  DAY
     Route: 061
  7. CLINDAMYCIN [Suspect]
     Active Substance: CLINDAMYCIN
     Indication: Product used for unknown indication
     Dosage: TWO  CAPSULES  TWICE A  DAY
     Route: 048
  8. OMEPRAZOLE [Suspect]
     Active Substance: OMEPRAZOLE
     Indication: Gastrooesophageal reflux disease
     Route: 048
  9. BISOPROLOL FUMARATE [Suspect]
     Active Substance: BISOPROLOL FUMARATE
     Indication: Hypertension
     Route: 048
  10. AMILORIDE HYDROCHLORIDE\HYDROCHLOROTHIAZIDE [Suspect]
     Active Substance: AMILORIDE HYDROCHLORIDE\HYDROCHLOROTHIAZIDE
     Indication: Hypertension
     Dosage: 5/50 MG  ONE TABLET  DAILY
     Route: 048
  11. ACETAMINOPHEN\CODEINE PHOSPHATE\MEPROBAMATE [Suspect]
     Active Substance: ACETAMINOPHEN\CODEINE PHOSPHATE\MEPROBAMATE
     Indication: Pain
     Dosage: ONE TO  TWO  TABLETS  THREE  TIMES A  DAY
     Route: 048
  12. ETORICOXIB [Suspect]
     Active Substance: ETORICOXIB
     Indication: Pain
     Dosage: ONE TABLET  DAILY
     Route: 048
  13. NORFLEX [Suspect]
     Active Substance: ORPHENADRINE CITRATE
     Indication: Product used for unknown indication
     Dosage: AS  DIRECTED
     Route: 048
  14. BENZYDAMINE HYDROCHLORIDE [Suspect]
     Active Substance: BENZYDAMINE HYDROCHLORIDE
     Indication: Product used for unknown indication
     Dosage: AS  DIRECTED
     Route: 061
  15. MUPIROCIN [Suspect]
     Active Substance: MUPIROCIN
     Indication: Product used for unknown indication
     Dosage: AS PER  PACKAGE  INSERT
     Route: 061
  16. ACETAMINOPHEN\CAFFEINE\CODEINE\DOXYLAMINE [Suspect]
     Active Substance: ACETAMINOPHEN\CAFFEINE\CODEINE\DOXYLAMINE
     Indication: Product used for unknown indication
     Dosage: AS PER  PACKAGE  INSERT
     Route: 048

REACTIONS (1)
  - Gastric ulcer [Unknown]
